FAERS Safety Report 5390330-1 (Version None)
Quarter: 2007Q3

REPORT INFORMATION
  Report Type: 
  Country: None (occurrence: None)
  Receive Date: 20070718
  Receipt Date: 20070709
  Transmission Date: 20080115
  Serious: Yes (Hospitalization, Disabling)
  Sender: FDA-Public Use
  Company Number: CH-PFIZER INC-2007044160

PATIENT
  Age: 44 Year
  Sex: Female

DRUGS (3)
  1. KETAMINE HYDROCHLORIDE [Suspect]
     Indication: STUPOR
     Dates: start: 20051110, end: 20051110
  2. FENTANYL TRANSDERMAL SYSTEM [Concomitant]
     Dates: start: 20051110, end: 20051110
  3. NITRAZEPAM [Concomitant]
     Dates: start: 20051110, end: 20051110

REACTIONS (5)
  - DEPRESSION [None]
  - DISSOCIATIVE DISORDER [None]
  - FEAR [None]
  - HALLUCINATION [None]
  - SLEEP DISORDER [None]
